FAERS Safety Report 9250548 (Version 3)
Quarter: 2013Q4

REPORT INFORMATION
  Report Type: Spontaneous
  Country: US (occurrence: US)
  Receive Date: 20130424
  Receipt Date: 20131118
  Transmission Date: 20140711
  Serious: Yes (Hospitalization)
  Sender: FDA-Public Use
  Company Number: US-BAYER-2013-047449

PATIENT
  Age: 26 Year
  Sex: Female

DRUGS (4)
  1. MIRENA [Suspect]
     Indication: CONTRACEPTION
     Dosage: 20 MCG/24HR, CONT
     Route: 015
     Dates: start: 200705, end: 2009
  2. MIRENA [Suspect]
     Indication: CONTRACEPTION
     Dosage: 20 MCG/24HR, CONT
     Route: 015
     Dates: start: 2009, end: 20130522
  3. COMPAZINE [Concomitant]
  4. PRENATAL VITAMINS [Concomitant]

REACTIONS (18)
  - Device dislocation [None]
  - Ovarian cyst [None]
  - Pelvic inflammatory disease [None]
  - Post-traumatic stress disorder [None]
  - Pain [None]
  - Abdominal discomfort [None]
  - Medical device discomfort [None]
  - Medical device pain [None]
  - Emotional distress [None]
  - Anxiety [None]
  - Fear [None]
  - Nervousness [None]
  - Anhedonia [None]
  - Deformity [None]
  - General physical health deterioration [None]
  - Injury [None]
  - Device dislocation [None]
  - Device issue [None]
